FAERS Safety Report 4417675-3 (Version None)
Quarter: 2004Q2

REPORT INFORMATION
  Report Type: 
  Country: None (occurrence: None)
  Receive Date: 20040629
  Receipt Date: 20040105
  Transmission Date: 20050107
  Serious: Yes (Hospitalization, Other)
  Sender: FDA-Public Use
  Company Number: USA040155769

PATIENT
  Age: 73 Year
  Sex: Female

DRUGS (4)
  1. HUMALOG [Suspect]
     Dates: start: 20020101, end: 20030101
  2. HUMULIN 70/30 [Suspect]
     Dosage: 14 U/2 DAY
  3. ACTOS [Concomitant]
  4. GLYBURIDE [Concomitant]

REACTIONS (11)
  - BLOOD GLUCOSE DECREASED [None]
  - BLOOD GLUCOSE INCREASED [None]
  - CARDIAC FAILURE CONGESTIVE [None]
  - CORONARY ARTERIAL STENT INSERTION [None]
  - DIFFICULTY IN WALKING [None]
  - HIP SURGERY [None]
  - INTRACARDIAC THROMBUS [None]
  - KNEE OPERATION [None]
  - MYOCARDIAL INFARCTION [None]
  - PAIN [None]
  - PNEUMONIA [None]
